FAERS Safety Report 26132032 (Version 1)
Quarter: 2025Q4

REPORT INFORMATION
  Report Type: Other
  Country: CN (occurrence: CN)
  Receive Date: 20251208
  Receipt Date: 20251208
  Transmission Date: 20260118
  Serious: Yes (Life-Threatening, Hospitalization)
  Sender: INCYTE
  Company Number: CN-002147023-NVSC2025CN187118

PATIENT
  Age: 53 Year
  Weight: 58 kg

DRUGS (1)
  1. RUXOLITINIB [Suspect]
     Active Substance: RUXOLITINIB
     Indication: Graft versus host disease
     Dosage: 20 MG, BID

REACTIONS (3)
  - Platelet count decreased [Recovering/Resolving]
  - White blood cell count decreased [Recovering/Resolving]
  - Haemoglobin decreased [Recovering/Resolving]
